FAERS Safety Report 5902344-0 (Version None)
Quarter: 2008Q3

REPORT INFORMATION
  Report Type: 
  Country: None (occurrence: None)
  Receive Date: 20080929
  Receipt Date: 20080912
  Transmission Date: 20090109
  Serious: No
  Sender: FDA-Public Use
  Company Number: US-B.I. PHARMACEUTICALS,INC./RIDGEFIELD-2008-BP-14575BP

PATIENT
  Age: 47 Year
  Sex: Female

DRUGS (6)
  1. CATAPRES-TTS-1 [Suspect]
     Indication: DRUG THERAPY CHANGED
     Dosage: .1MG
     Route: 061
     Dates: start: 20080811
  2. SINEMET [Concomitant]
     Indication: RESTLESS LEGS SYNDROME
  3. REQUIP [Concomitant]
     Indication: RESTLESS LEGS SYNDROME
  4. MINOCYLIN [Concomitant]
     Indication: ROSACEA
  5. ULTRAM [Concomitant]
     Dates: end: 20080906
  6. ATIVAN [Concomitant]
     Dates: end: 20080906

REACTIONS (2)
  - APPLICATION SITE PRURITUS [None]
  - APPLICATION SITE RASH [None]
